FAERS Safety Report 16691801 (Version 1)
Quarter: 2019Q3

REPORT INFORMATION
  Report Type: Spontaneous
  Country: ES (occurrence: ES)
  Receive Date: 20190812
  Receipt Date: 20190812
  Transmission Date: 20191004
  Serious: Yes (Hospitalization, Other)
  Sender: FDA-Public Use
  Company Number: ES-JNJFOC-20190807393

PATIENT
  Sex: Female

DRUGS (25)
  1. ALDACTONE [Concomitant]
     Active Substance: SPIRONOLACTONE
     Dosage: 2-0-0
     Route: 065
  2. HIBOR [Concomitant]
     Dosage: 5000 MU, DAILY
     Route: 058
  3. MAGNOGENE [Concomitant]
     Dosage: 1-0-1
     Route: 065
  4. MAGNOGENE [Concomitant]
     Route: 065
  5. ZOMARIST (METFORMIN HYDROCHLORIDE, VILDAGLIPTIN) [Concomitant]
     Active Substance: METFORMIN HYDROCHLORIDE\VILDAGLIPTIN
     Route: 065
  6. CAELYX [Suspect]
     Active Substance: DOXORUBICIN HYDROCHLORIDE
     Dosage: UNK
     Route: 065
     Dates: start: 20180725, end: 20180822
  7. CAELYX [Suspect]
     Active Substance: DOXORUBICIN HYDROCHLORIDE
     Route: 065
     Dates: start: 20180725
  8. CARBOPLATIN. [Suspect]
     Active Substance: CARBOPLATIN
     Indication: OVARIAN CANCER
     Route: 042
     Dates: start: 20170817, end: 20180314
  9. TAXOL [Suspect]
     Active Substance: PACLITAXEL
     Indication: PRODUCT USED FOR UNKNOWN INDICATION
     Route: 065
     Dates: start: 20180314
  10. CAELYX [Suspect]
     Active Substance: DOXORUBICIN HYDROCHLORIDE
     Indication: PRODUCT USED FOR UNKNOWN INDICATION
     Dosage: UNK
     Route: 065
     Dates: start: 20180822
  11. FORTASEC                           /00384301/ [Concomitant]
     Dosage: UNK, 3X/DAY (EVERY 8 HOURS)
     Route: 065
  12. CARBOPLATIN. [Suspect]
     Active Substance: CARBOPLATIN
     Route: 065
     Dates: start: 20180725
  13. CARBOPLATIN. [Suspect]
     Active Substance: CARBOPLATIN
     Route: 065
     Dates: start: 20180131
  14. TAXOL [Suspect]
     Active Substance: PACLITAXEL
     Route: 065
     Dates: start: 20180131
  15. PANTOPRAZOLE [Concomitant]
     Active Substance: PANTOPRAZOLE
     Dosage: 1 DF, DAILY (EVERY 24 HOURS)
     Route: 065
  16. SEGURIL [Concomitant]
     Active Substance: FUROSEMIDE
     Dosage: 1-1-0
     Route: 065
  17. CARBOPLATIN. [Suspect]
     Active Substance: CARBOPLATIN
     Route: 065
     Dates: start: 20180822
  18. CARBOPLATIN. [Suspect]
     Active Substance: CARBOPLATIN
     Route: 065
     Dates: start: 20180725, end: 20180822
  19. SEGURIL [Concomitant]
     Active Substance: FUROSEMIDE
     Dosage: AT BREAKFAST
     Route: 065
  20. FERPLEX FOL [Concomitant]
     Dosage: 1 DF, DAILY
     Route: 065
  21. CARBOPLATIN. [Suspect]
     Active Substance: CARBOPLATIN
     Route: 065
     Dates: start: 20180314
  22. CARBOPLATIN. [Suspect]
     Active Substance: CARBOPLATIN
     Route: 065
     Dates: start: 20180221
  23. TAXOL [Suspect]
     Active Substance: PACLITAXEL
     Route: 065
     Dates: start: 20170817, end: 20180314
  24. TAXOL [Suspect]
     Active Substance: PACLITAXEL
     Route: 065
     Dates: start: 20180221
  25. CALCIUM [Concomitant]
     Active Substance: CALCIUM
     Dosage: 1-0-1
     Route: 065

REACTIONS (8)
  - Embolism [Unknown]
  - Drug hypersensitivity [Recovering/Resolving]
  - Pruritus [Recovering/Resolving]
  - Asthma [Unknown]
  - Wound infection [Unknown]
  - Dyspnoea [Unknown]
  - Enterocutaneous fistula [Unknown]
  - Neoplasm progression [Unknown]

NARRATIVE: CASE EVENT DATE: 201710
